FAERS Safety Report 18352585 (Version 3)
Quarter: 2025Q3

REPORT INFORMATION
  Report Type: Spontaneous
  Country: EU (occurrence: EU)
  Receive Date: 20201007
  Receipt Date: 20250913
  Transmission Date: 20251021
  Serious: Yes (Hospitalization, Other)
  Sender: AUROBINDO
  Company Number: EU-ASTELLAS-2020US032085

PATIENT
  Age: 29 Year
  Sex: Male

DRUGS (2)
  1. AMOXICILLIN\CLAVULANIC ACID [Suspect]
     Active Substance: AMOXICILLIN\CLAVULANIC ACID
     Indication: Hyperaemia
     Route: 065
  2. AMOXICILLIN\CLAVULANIC ACID [Suspect]
     Active Substance: AMOXICILLIN\CLAVULANIC ACID
     Indication: Pharyngeal erythema

REACTIONS (5)
  - Haemophagocytic lymphohistiocytosis [Recovered/Resolved]
  - Rash maculo-papular [Unknown]
  - Rash pruritic [Unknown]
  - Product use in unapproved indication [Unknown]
  - Off label use [Unknown]
